FAERS Safety Report 11864051 (Version 2)
Quarter: 2016Q1

REPORT INFORMATION
  Report Type: Report from Study
  Country: DE (occurrence: DE)
  Receive Date: 20151223
  Receipt Date: 20160201
  Transmission Date: 20160526
  Serious: Yes (Hospitalization, Other)
  Sender: FDA-Public Use
  Company Number: DE-ABBVIE-15K-062-1498361-00

PATIENT
  Age: 19 Year
  Sex: Female
  Weight: 54 kg

DRUGS (1)
  1. HUMIRA [Suspect]
     Active Substance: ADALIMUMAB
     Indication: CROHN^S DISEASE
     Route: 058
     Dates: start: 20150423, end: 20151205

REACTIONS (6)
  - Actinomycosis [Recovering/Resolving]
  - Nasopharyngitis [Recovering/Resolving]
  - Rhinitis [Recovering/Resolving]
  - Dermatitis acneiform [Recovering/Resolving]
  - Rash [Recovering/Resolving]
  - Acne conglobata [Recovering/Resolving]

NARRATIVE: CASE EVENT DATE: 20151023
